FAERS Safety Report 8243218-2 (Version None)
Quarter: 2012Q1

REPORT INFORMATION
  Report Type: 
  Country: None (occurrence: None)
  Receive Date: 20120329
  Receipt Date: 20120322
  Transmission Date: 20120608
  Serious: Yes (Other)
  Sender: FDA-Public Use
  Company Number: US-JNJFOC-20120311624

PATIENT
  Sex: Male
  Weight: 97.98 kg

DRUGS (8)
  1. NOVOLOG [Concomitant]
     Indication: DIABETES MELLITUS
     Dosage: FLEX PEN AS NEEDED
  2. ZETIA [Concomitant]
     Indication: CARDIAC DISORDER
     Route: 048
  3. LANTUS [Concomitant]
     Indication: DIABETES MELLITUS
     Dosage: 30 UNITS DAILY
     Route: 058
  4. HYDROCHLOROTHIAZIDE [Concomitant]
     Indication: HYPERTENSION
  5. XARELTO [Suspect]
     Route: 048
     Dates: start: 20120308, end: 20120310
  6. LIPITOR [Concomitant]
     Indication: BLOOD CHOLESTEROL
  7. XARELTO [Suspect]
     Indication: ATRIAL FIBRILLATION
     Route: 048
     Dates: start: 20120314
  8. CARVEDILOL [Concomitant]
     Indication: CARDIAC DISORDER
     Route: 048

REACTIONS (3)
  - ASTHENIA [None]
  - CORONARY ARTERY DISEASE [None]
  - DIZZINESS [None]
